FAERS Safety Report 6516559-4 (Version None)
Quarter: 2009Q4

REPORT INFORMATION
  Report Type: 
  Country: None (occurrence: None)
  Receive Date: 20091223
  Receipt Date: 20091211
  Transmission Date: 20100525
  Serious: Yes (Other)
  Sender: FDA-Public Use
  Company Number: US-BAYER-200942457NA

PATIENT
  Sex: Female

DRUGS (4)
  1. MAGNEVIST [Suspect]
     Indication: NUCLEAR MAGNETIC RESONANCE IMAGING
  2. OMNISCAN [Suspect]
     Indication: NUCLEAR MAGNETIC RESONANCE IMAGING
  3. UNSPECIFIED GADOLINIUM DYE [Suspect]
     Indication: NUCLEAR MAGNETIC RESONANCE IMAGING
     Dates: start: 20030714, end: 20030714
  4. UNSPECIFIED GADOLINIUM DYE [Suspect]
     Dates: start: 20070102, end: 20070102

REACTIONS (4)
  - GENERALISED OEDEMA [None]
  - NEPHROGENIC SYSTEMIC FIBROSIS [None]
  - PAIN [None]
  - SKIN FIBROSIS [None]
